FAERS Safety Report 4296755-X (Version None)
Quarter: 2004Q1

REPORT INFORMATION
  Report Type: 
  Country: None (occurrence: None)
  Receive Date: 20040126
  Receipt Date: 20030904
  Transmission Date: 20041129
  Serious: No
  Sender: FDA-Public Use
  Company Number: USA030742612

PATIENT
  Age: 43 Year
  Sex: Female
  Weight: 50 kg

DRUGS (2)
  1. STRATTERA [Suspect]
     Indication: ATTENTION DEFICIT/HYPERACTIVITY DISORDER
     Dosage: 80 MG/DAY
     Dates: start: 20030724, end: 20030728
  2. ADDERALL 10 [Concomitant]

REACTIONS (6)
  - DYSPEPSIA [None]
  - EXTRASYSTOLES [None]
  - FATIGUE [None]
  - FEELING DRUNK [None]
  - HEADACHE [None]
  - MULTIPLE SCLEROSIS [None]
